FAERS Safety Report 24718053 (Version 2)
Quarter: 2025Q1

REPORT INFORMATION
  Report Type: Spontaneous
  Country: US (occurrence: US)
  Receive Date: 20241210
  Receipt Date: 20250207
  Transmission Date: 20250408
  Serious: Yes (Other)
  Sender: ITALFARMACO SPA
  Company Number: US-ITALFARMACO SPA-2166836

PATIENT
  Age: 11 Year
  Sex: Male
  Weight: 24.5 kg

DRUGS (4)
  1. DUVYZAT [Suspect]
     Active Substance: GIVINOSTAT
     Indication: Duchenne muscular dystrophy
     Dates: start: 20241107, end: 20241123
  2. PREDNISOLONE [Concomitant]
     Active Substance: PREDNISOLONE
  3. LISINOPRIL [Concomitant]
     Active Substance: LISINOPRIL
  4. FAMOTIDINE [Concomitant]
     Active Substance: FAMOTIDINE

REACTIONS (1)
  - Thrombocytopenia [Unknown]
